FAERS Safety Report 23401896 (Version 2)
Quarter: 2024Q1

REPORT INFORMATION
  Report Type: Report from Study
  Country: ES (occurrence: ES)
  Receive Date: 20240115
  Receipt Date: 20240125
  Transmission Date: 20240410
  Serious: Yes (Death, Hospitalization, Other)
  Sender: FDA-Public Use
  Company Number: ES-ULTRAGENYX PHARMACEUTICAL INC.-ES-UGX-24-00040

PATIENT
  Age: 3 Year
  Sex: Female

DRUGS (10)
  1. TRIHEPTANOIN [Suspect]
     Active Substance: TRIHEPTANOIN
     Indication: Carnitine palmitoyltransferase deficiency
     Dosage: 5.2 MILLILITER X 5 SHOTS
     Dates: start: 202110, end: 202310
  2. OMEPRAZOLE [Concomitant]
     Active Substance: OMEPRAZOLE
     Indication: Product used for unknown indication
     Dosage: 5 MILLILITER, QD
     Dates: end: 202310
  3. CARNITINE [Concomitant]
     Active Substance: CARNITINE
     Indication: Product used for unknown indication
     Dosage: 4 MILLILITER, Q8H
     Dates: end: 202310
  4. CARGLUMIC ACID [Concomitant]
     Active Substance: CARGLUMIC ACID
     Indication: Product used for unknown indication
     Dosage: 200 MILLIGRAM, Q8H
     Dates: end: 202310
  5. SODIUM BETA-HYDROXYBUTYRATE [Concomitant]
     Indication: Product used for unknown indication
     Dosage: 1.5 MILLIGRAM, Q6H
     Dates: end: 202310
  6. LEVETIRACETAM [Concomitant]
     Active Substance: LEVETIRACETAM
     Indication: Product used for unknown indication
     Dosage: 2 MILLILITER, Q12H
     Dates: end: 202310
  7. ATENOLOL [Concomitant]
     Active Substance: ATENOLOL
     Indication: Product used for unknown indication
     Dosage: 6 MILLILITER, Q12H
     Dates: end: 202310
  8. CAPTOPRIL [Concomitant]
     Active Substance: CAPTOPRIL
     Indication: Product used for unknown indication
     Dosage: 2 MILLILITER, Q8H
     Dates: end: 202310
  9. PREDNISOLONE [Concomitant]
     Active Substance: PREDNISOLONE
     Indication: Product used for unknown indication
     Dosage: 3 MILLILITER, Q8H
     Dates: end: 202310
  10. IPRATROPIUM [Concomitant]
     Active Substance: IPRATROPIUM
     Indication: Product used for unknown indication
     Dosage: 2 PUFFS EVERY HOUR
     Dates: end: 202310

REACTIONS (7)
  - Respiratory tract infection [Fatal]
  - Hypoxic-ischaemic encephalopathy [Fatal]
  - Cardio-respiratory arrest [Fatal]
  - Myopathy [Unknown]
  - Respiratory failure [Fatal]
  - Cardiac failure [Unknown]
  - Cardiac dysfunction [Unknown]

NARRATIVE: CASE EVENT DATE: 20220101
